FAERS Safety Report 11744832 (Version 1)
Quarter: 2015Q4

REPORT INFORMATION
  Report Type: Report from Study
  Country: US (occurrence: US)
  Receive Date: 20151116
  Receipt Date: 20151116
  Transmission Date: 20160304
  Serious: Yes (Other)
  Sender: FDA-Public Use
  Company Number: US-ABBVIE-15K-163-1498443-00

PATIENT
  Sex: Female

DRUGS (1)
  1. HUMIRA [Suspect]
     Active Substance: ADALIMUMAB
     Indication: COLITIS ULCERATIVE
     Route: 058
     Dates: start: 2013, end: 201407

REACTIONS (4)
  - Actinic keratosis [Not Recovered/Not Resolved]
  - Precancerous skin lesion [Recovered/Resolved]
  - Drug ineffective [Unknown]
  - Herpes zoster [Unknown]
